FAERS Safety Report 4807926-5 (Version None)
Quarter: 2005Q4

REPORT INFORMATION
  Report Type: 
  Country: None (occurrence: None)
  Receive Date: 20051020
  Receipt Date: 20051005
  Transmission Date: 20060501
  Serious: Yes (Other)
  Sender: FDA-Public Use
  Company Number: S05-CAN-03792-01

PATIENT
  Age: 54 Year
  Sex: Female

DRUGS (3)
  1. ESCITALOPRAM OXALATE [Suspect]
     Dosage: 10 MG QD PO
     Route: 048
  2. IBUPROFEN [Concomitant]
  3. TYLENOL [Concomitant]

REACTIONS (2)
  - PRURITUS [None]
  - URTICARIA [None]
